FAERS Safety Report 23617565 (Version 1)
Quarter: 2024Q1

REPORT INFORMATION
  Report Type: Spontaneous
  Country: GB (occurrence: GB)
  Receive Date: 20240311
  Receipt Date: 20240311
  Transmission Date: 20240409
  Serious: Yes (Other)
  Sender: FDA-Public Use
  Company Number: GB-OTSUKA-2024_005332

PATIENT
  Age: 40 Year

DRUGS (1)
  1. ARIPIPRAZOLE [Suspect]
     Active Substance: ARIPIPRAZOLE
     Indication: Schizophrenia
     Dosage: 400 MG, QM??POWDER AND SOLVENT FOR CONCENTRATE FOR SOLUTION FOR INFUSION
     Route: 065

REACTIONS (1)
  - Hallucination, auditory [Unknown]
